FAERS Safety Report 11805641 (Version 8)
Quarter: 2016Q2

REPORT INFORMATION
  Report Type: Spontaneous
  Country: US (occurrence: US)
  Receive Date: 20151207
  Receipt Date: 20160524
  Transmission Date: 20160815
  Serious: Yes (Other)
  Sender: FDA-Public Use
  Company Number: US-009507513-1512USA002860

PATIENT
  Age: 75 Year
  Sex: Male
  Weight: 68 kg

DRUGS (5)
  1. ASPIRIN. [Concomitant]
     Active Substance: ASPIRIN
     Dosage: UNK
  2. XGEVA [Concomitant]
     Active Substance: DENOSUMAB
     Dosage: UNK, QM
  3. KEYTRUDA [Suspect]
     Active Substance: PEMBROLIZUMAB
     Indication: MALIGNANT MELANOMA
     Dosage: 2 MG/KG, EVERY 21 DAYS
     Route: 042
     Dates: start: 201406, end: 20160505
  4. CIALIS [Concomitant]
     Active Substance: TADALAFIL
     Dosage: UNK
  5. METFORMIN [Concomitant]
     Active Substance: METFORMIN HYDROCHLORIDE
     Dosage: UNK

REACTIONS (24)
  - Polyarthritis [Unknown]
  - Monocyte percentage increased [Unknown]
  - Haematocrit decreased [Unknown]
  - Mean platelet volume decreased [Not Recovered/Not Resolved]
  - Glossodynia [Recovered/Resolved]
  - Rash [Unknown]
  - Rash [Recovered/Resolved]
  - Dysgeusia [Recovering/Resolving]
  - Blood creatinine increased [Not Recovered/Not Resolved]
  - Protein total increased [Unknown]
  - Pulmonary mass [Unknown]
  - Glycosylated haemoglobin increased [Unknown]
  - Lymphocyte count decreased [Not Recovered/Not Resolved]
  - Red blood cell count decreased [Not Recovered/Not Resolved]
  - Basophil percentage increased [Unknown]
  - Blood urea increased [Not Recovered/Not Resolved]
  - Oral pain [Recovered/Resolved]
  - Back injury [Unknown]
  - Mucosal inflammation [Recovering/Resolving]
  - Blood glucose fluctuation [Not Recovered/Not Resolved]
  - Stomatitis [Recovered/Resolved]
  - White blood cell count decreased [Unknown]
  - Haemoglobin decreased [Unknown]
  - Mean cell haemoglobin increased [Not Recovered/Not Resolved]

NARRATIVE: CASE EVENT DATE: 2016
